FAERS Safety Report 6426144-0 (Version None)
Quarter: 2009Q4

REPORT INFORMATION
  Report Type: 
  Country: None (occurrence: None)
  Receive Date: 20091103
  Receipt Date: 20091103
  Transmission Date: 20100525
  Serious: Yes (Life-Threatening)
  Sender: FDA-Public Use
  Company Number: None

PATIENT
  Age: 52 Year
  Sex: Male
  Weight: 86.64 kg

DRUGS (1)
  1. AZTREONAM [Suspect]
     Indication: URINARY TRACT INFECTION
     Dosage: 1 GM BID IV
     Route: 042
     Dates: start: 20090128, end: 20090129

REACTIONS (1)
  - ANAPHYLACTIC REACTION [None]
